FAERS Safety Report 12527018 (Version 3)
Quarter: 2016Q4

REPORT INFORMATION
  Report Type: Spontaneous
  Country: US (occurrence: US)
  Receive Date: 20160705
  Receipt Date: 20161111
  Transmission Date: 20170207
  Serious: No
  Sender: FDA-Public Use
  Company Number: US-GLAXOSMITHKLINE-US2016089409

PATIENT
  Sex: Female

DRUGS (9)
  1. CLOBETASOL [Concomitant]
     Active Substance: CLOBETASOL
  2. LIDEX CREAM [Concomitant]
  3. NORVASC [Concomitant]
     Active Substance: AMLODIPINE BESYLATE
  4. UREA CREAM [Concomitant]
  5. SORIATANE [Suspect]
     Active Substance: ACITRETIN
     Indication: PSORIASIS
     Dosage: 25 MG, BID
     Route: 048
     Dates: start: 20151116
  6. TOPROL XL [Concomitant]
     Active Substance: METOPROLOL SUCCINATE
  7. SORIATANE [Suspect]
     Active Substance: ACITRETIN
     Indication: ECZEMA
     Dosage: 25 MG, BID
     Route: 048
     Dates: start: 201603
  8. MOBIC [Concomitant]
     Active Substance: MELOXICAM
  9. TRIAMCINOLONE [Concomitant]
     Active Substance: TRIAMCINOLONE

REACTIONS (1)
  - Swelling face [Recovered/Resolved]
